FAERS Safety Report 9244830 (Version 1)
Quarter: 2013Q1

REPORT INFORMATION
  Report Type: Spontaneous
  Country: US (occurrence: None)
  Receive Date: 20121130
  Receipt Date: 20121130
  Transmission Date: 20140127
  Serious: Yes (Hospitalization)
  Sender: FDA-Public Use
  Company Number: 2012CP000098

PATIENT
  Age: 8 Month
  Sex: 0

DRUGS (1)
  1. OFIRMEV [Suspect]
     Route: 042

REACTIONS (2)
  - Liver injury [None]
  - Overdose [None]
